FAERS Safety Report 26206039 (Version 1)
Quarter: 2025Q4

REPORT INFORMATION
  Report Type: Spontaneous
  Country: JP (occurrence: JP)
  Receive Date: 20251229
  Receipt Date: 20251229
  Transmission Date: 20260117
  Serious: Yes (Other)
  Sender: MERCK SHARP & DOHME LLC
  Company Number: JP-009507513-2364361

PATIENT
  Age: 80 Year
  Sex: Male

DRUGS (4)
  1. PEMBROLIZUMAB [Suspect]
     Active Substance: PEMBROLIZUMAB
     Indication: Clear cell renal cell carcinoma
     Route: 041
  2. LENVIMA [Suspect]
     Active Substance: LENVATINIB
     Indication: Clear cell renal cell carcinoma
     Route: 048
  3. LENVIMA [Suspect]
     Active Substance: LENVATINIB
     Indication: Clear cell renal cell carcinoma
     Route: 048
  4. LENVIMA [Suspect]
     Active Substance: LENVATINIB
     Indication: Clear cell renal cell carcinoma
     Route: 048

REACTIONS (5)
  - Renal impairment [Unknown]
  - Blood pressure inadequately controlled [Unknown]
  - Hypothyroidism [Unknown]
  - Proteinuria [Unknown]
  - Hypertension [Unknown]
